FAERS Safety Report 8938573 (Version 1)
Quarter: 2012Q4

REPORT INFORMATION
  Report Type: Spontaneous
  Country: US (occurrence: None)
  Receive Date: 20121129
  Receipt Date: 20121129
  Transmission Date: 20130627
  Serious: Yes (Other)
  Sender: FDA-Public Use
  Company Number: None

PATIENT
  Age: 2 Year
  Sex: Male

DRUGS (1)
  1. OSCILLOCOCCINUM [Suspect]
     Indication: FLU
     Route: 048
     Dates: start: 20121122, end: 20121122

REACTIONS (3)
  - Urticaria [None]
  - Bronchial hyperreactivity [None]
  - Hypersensitivity [None]
